FAERS Safety Report 4555722-9 (Version None)
Quarter: 2005Q1

REPORT INFORMATION
  Report Type: 
  Country: None (occurrence: None)
  Receive Date: 20050112
  Receipt Date: 20040602
  Transmission Date: 20050727
  Serious: Yes (Hospitalization)
  Sender: FDA-Public Use
  Company Number: 200418192BWH

PATIENT
  Age: 89 Year
  Sex: Male
  Weight: 63.5036 kg

DRUGS (3)
  1. CIPRO [Suspect]
     Indication: CYSTITIS
     Dosage: 500 MG, TOTAL DAILY,  ORAL
     Route: 048
     Dates: start: 20040414
  2. BLOOD THINNER (NOS) [Concomitant]
  3. MEDICATION TO REGULATE HEART RHYTHM (NOS) [Concomitant]

REACTIONS (3)
  - ASTHENIA [None]
  - DIARRHOEA [None]
  - NAUSEA [None]
